FAERS Safety Report 19769380 (Version 2)
Quarter: 2021Q3

REPORT INFORMATION
  Report Type: Spontaneous
  Country: CL (occurrence: CL)
  Receive Date: 20210831
  Receipt Date: 20210909
  Transmission Date: 20211014
  Serious: Yes (Other)
  Sender: FDA-Public Use
  Company Number: CL-PFIZER INC-202101062933

PATIENT
  Sex: Male

DRUGS (2)
  1. FENTANYL CITRATE. [Suspect]
     Active Substance: FENTANYL CITRATE
     Indication: SEDATION
     Dosage: 2 UG/KG PER HOUR
     Route: 064
  2. FENTANYL CITRATE. [Suspect]
     Active Substance: FENTANYL CITRATE
     Indication: ANALGESIC THERAPY

REACTIONS (5)
  - Urinary ascites [Recovered/Resolved]
  - Premature baby [Unknown]
  - Foetal megacystis [Unknown]
  - Urinary bladder rupture [Recovered/Resolved]
  - Drug withdrawal syndrome neonatal [Unknown]
